FAERS Safety Report 6998850-0 (Version None)
Quarter: 2010Q3

REPORT INFORMATION
  Report Type: 
  Country: None (occurrence: None)
  Receive Date: 20100920
  Receipt Date: 20091119
  Transmission Date: 20110219
  Serious: No
  Sender: FDA-Public Use
  Company Number: US-ASTRAZENECA-2009SE27616

PATIENT
  Sex: Female

DRUGS (1)
  1. SEROQUEL [Suspect]
     Route: 048
     Dates: start: 20050101

REACTIONS (7)
  - DENTAL CARIES [None]
  - DENTAL DISCOMFORT [None]
  - ENDODONTIC PROCEDURE [None]
  - LOOSE TOOTH [None]
  - TOOTH EROSION [None]
  - TOOTH EXTRACTION [None]
  - TOOTH REPAIR [None]
